FAERS Safety Report 7939491-8 (Version None)
Quarter: 2011Q4

REPORT INFORMATION
  Report Type: 
  Country: None (occurrence: None)
  Receive Date: 20111125
  Receipt Date: 20111114
  Transmission Date: 20120403
  Serious: Yes (Other)
  Sender: FDA-Public Use
  Company Number: US-BAYER-2011-100392

PATIENT
  Sex: Female

DRUGS (1)
  1. MIRENA [Suspect]
     Indication: MENORRHAGIA
     Dosage: 20 MCG/24HR, CONT
     Route: 015
     Dates: start: 20110113, end: 20111031

REACTIONS (14)
  - MOOD SWINGS [None]
  - DYSPAREUNIA [None]
  - FEELING ABNORMAL [None]
  - DEPRESSED MOOD [None]
  - WEIGHT FLUCTUATION [None]
  - METRORRHAGIA [None]
  - LOSS OF LIBIDO [None]
  - PREMENSTRUAL SYNDROME [None]
  - WEIGHT INCREASED [None]
  - DEPRESSION [None]
  - ACNE [None]
  - BIPOLAR DISORDER [None]
  - BREAST ENLARGEMENT [None]
  - ABDOMINAL DISTENSION [None]
